FAERS Safety Report 21397507 (Version 1)
Quarter: 2022Q3

REPORT INFORMATION
  Report Type: Spontaneous
  Country: DE (occurrence: DE)
  Receive Date: 20220930
  Receipt Date: 20220930
  Transmission Date: 20221026
  Serious: Yes (Hospitalization)
  Sender: FDA-Public Use
  Company Number: DE-ADRED-08517-01

PATIENT
  Age: 54 Year
  Sex: Female
  Weight: 47 kg

DRUGS (5)
  1. PROGESTERONE [Suspect]
     Active Substance: PROGESTERONE
     Dosage: 100 MG, 0-0-2-0, KAPSELN
     Route: 048
  2. CANDESARTAN [Concomitant]
     Active Substance: CANDESARTAN
     Dosage: 16 MG, BEDARF, TABLETTEN
     Route: 048
  3. IBUPROFEN [Concomitant]
     Active Substance: IBUPROFEN
     Dosage: 600 MG, BEDARF, TABLETTEN
     Route: 048
  4. ESCITALOPRAM [Concomitant]
     Active Substance: ESCITALOPRAM OXALATE
     Dosage: 10 MG, 1.5-0-0-0, TABLETTEN
     Route: 048
  5. ZOPICLONE [Concomitant]
     Active Substance: ZOPICLONE
     Dosage: 7.5 MG, BEDARF, TABLETTEN
     Route: 048

REACTIONS (9)
  - Insomnia [Unknown]
  - Depressed mood [Unknown]
  - General physical health deterioration [Unknown]
  - Diarrhoea [Unknown]
  - Fatigue [Unknown]
  - Renal pain [Unknown]
  - Restlessness [Unknown]
  - Weight decreased [Unknown]
  - Decreased appetite [Unknown]
